FAERS Safety Report 21340686 (Version 2)
Quarter: 2022Q4

REPORT INFORMATION
  Report Type: Spontaneous
  Country: US (occurrence: US)
  Receive Date: 20220916
  Receipt Date: 20221005
  Transmission Date: 20230113
  Serious: Yes (Hospitalization, Other)
  Sender: FDA-Public Use
  Company Number: US-CADILA HEALTHCARE LIMITED-US-ZYDUS-082351

PATIENT

DRUGS (2)
  1. BOSENTAN [Suspect]
     Active Substance: BOSENTAN
     Indication: Pulmonary arterial hypertension
     Dosage: , BID
     Route: 048
     Dates: start: 20190605
  2. AMLODIPINE [Concomitant]
     Active Substance: AMLODIPINE BESYLATE
     Indication: Product used for unknown indication
     Dosage: UNK, UNK
     Route: 065

REACTIONS (10)
  - Chest pain [Unknown]
  - Ulcer [Unknown]
  - Hypoxia [Unknown]
  - Cardiac failure [Unknown]
  - Palpitations [Unknown]
  - Fatigue [Unknown]
  - Dyspnoea [Unknown]
  - Product dose omission issue [Unknown]
  - Asthenia [Unknown]
  - Tachycardia [Unknown]
